FAERS Safety Report 11371876 (Version 1)
Quarter: 2015Q3

REPORT INFORMATION
  Report Type: Spontaneous
  Country: IT (occurrence: IT)
  Receive Date: 20150812
  Receipt Date: 20150812
  Transmission Date: 20151125
  Serious: Yes (Hospitalization)
  Sender: FDA-Public Use
  Company Number: IT-GLAXOSMITHKLINE-IT2015GSK113116

PATIENT
  Age: 93 Year
  Sex: Female

DRUGS (5)
  1. EUTIMIL [Suspect]
     Active Substance: PAROXETINE HYDROCHLORIDE
     Indication: VASCULAR ENCEPHALOPATHY
     Dosage: 20 MG, QD
     Route: 048
     Dates: start: 20150101
  2. SERENASE [Interacting]
     Active Substance: HALOPERIDOL
     Indication: VASCULAR ENCEPHALOPATHY
     Dosage: 15 UNK, QD
     Route: 048
     Dates: start: 20140101
  3. TRITTICO [Interacting]
     Active Substance: TRAZODONE HYDROCHLORIDE
     Indication: VASCULAR ENCEPHALOPATHY
     Dosage: 150 MG, QD
     Route: 048
     Dates: start: 20140101
  4. SEROQUEL [Interacting]
     Active Substance: QUETIAPINE FUMARATE
     Indication: VASCULAR ENCEPHALOPATHY
     Dosage: 25 MG, QD
     Route: 048
     Dates: start: 20140101
  5. ATARAX [Interacting]
     Active Substance: HYDROXYZINE\HYDROXYZINE HYDROCHLORIDE
     Indication: VASCULAR ENCEPHALOPATHY
     Dosage: 25 MG, QD
     Route: 048
     Dates: start: 20140101

REACTIONS (1)
  - Psychomotor retardation [Not Recovered/Not Resolved]

NARRATIVE: CASE EVENT DATE: 20150115
